FAERS Safety Report 10459457 (Version 1)
Quarter: 2014Q3

REPORT INFORMATION
  Report Type: Spontaneous
  Country: DE (occurrence: DE)
  Receive Date: 20140917
  Receipt Date: 20140917
  Transmission Date: 20150326
  Serious: Yes (Other)
  Sender: FDA-Public Use
  Company Number: DE-MALLINCKRODT-T201403419

PATIENT
  Age: 69 Year
  Sex: Male
  Weight: 90 kg

DRUGS (2)
  1. TECHNESCAN HDP [Suspect]
     Active Substance: OXIDRONATE DISODIUM\TECHNETIUM TC-99M OXIDRONATE
     Indication: RADIOISOTOPE SCAN
     Dosage: UNK, SINGLE
     Route: 065
     Dates: start: 20140725, end: 20140725
  2. ULTRA-TECHNEKOW FM [Suspect]
     Active Substance: TECHNETIUM TC-99M
     Indication: RADIOISOTOPE SCAN
     Dosage: 685 MBQ, SINGLE
     Route: 065
     Dates: start: 20140725, end: 20140725

REACTIONS (2)
  - Vomiting [Recovered/Resolved]
  - Tongue oedema [Recovered/Resolved]

NARRATIVE: CASE EVENT DATE: 20140725
